FAERS Safety Report 4289280-3 (Version None)
Quarter: 2004Q1

REPORT INFORMATION
  Report Type: 
  Country: None (occurrence: None)
  Receive Date: 20040206
  Receipt Date: 20040126
  Transmission Date: 20041129
  Serious: Yes (Hospitalization, Congenital Anomaly)
  Sender: FDA-Public Use
  Company Number: 04P-056-0248957-00

PATIENT
  Sex: Male

DRUGS (1)
  1. DEPAKENE [Suspect]

REACTIONS (3)
  - CARDIAC DISORDER [None]
  - INGUINAL HERNIA [None]
  - MATERNAL DRUGS AFFECTING FOETUS [None]
